FAERS Safety Report 7167993-3 (Version None)
Quarter: 2010Q4

REPORT INFORMATION
  Report Type: 
  Country: None (occurrence: None)
  Receive Date: 20101216
  Receipt Date: 20101215
  Transmission Date: 20110411
  Serious: No
  Sender: FDA-Public Use
  Company Number: US-PFIZER INC-2010173093

PATIENT
  Sex: Female
  Weight: 101.6 kg

DRUGS (4)
  1. GEODON [Suspect]
     Indication: PARANOIA
     Dosage: 160 MG, 1X/DAY
     Route: 048
  2. SYNTHROID [Concomitant]
     Dosage: UNK
     Route: 048
  3. NEXIUM [Concomitant]
     Dosage: UNK
     Route: 048
  4. GLUCOPHAGE [Concomitant]
     Dosage: UNK
     Route: 048

REACTIONS (3)
  - DRUG TOLERANCE [None]
  - FEELING ABNORMAL [None]
  - STRESS [None]
